FAERS Safety Report 6139897-6 (Version None)
Quarter: 2009Q1

REPORT INFORMATION
  Report Type: 
  Country: None (occurrence: None)
  Receive Date: 20090331
  Receipt Date: 20090331
  Transmission Date: 20090719
  Serious: Yes (Hospitalization)
  Sender: FDA-Public Use
  Company Number: None

PATIENT
  Age: 85 Year
  Sex: Male

DRUGS (2)
  1. IBUPROFEN [Suspect]
     Indication: PAIN
     Dosage: 600 MG TID PO
     Route: 048
     Dates: start: 20090219, end: 20090311
  2. ASPIRIN [Suspect]
     Indication: ATRIAL FIBRILLATION
     Dosage: 81 MG EVERY DAY PO
     Route: 048
     Dates: start: 20060703

REACTIONS (2)
  - ANAEMIA [None]
  - GASTRIC HAEMORRHAGE [None]
